FAERS Safety Report 9374689 (Version 1)
Quarter: 2013Q2

REPORT INFORMATION
  Report Type: Other
  Country: CN (occurrence: CN)
  Receive Date: 20130628
  Receipt Date: 20130628
  Transmission Date: 20140414
  Serious: Yes (Hospitalization)
  Sender: FDA-Public Use
  Company Number: CN-MPIJNJ-2013-05015

PATIENT
  Sex: 0

DRUGS (7)
  1. VELCADE [Suspect]
     Indication: PLASMA CELL MYELOMA
     Dosage: 1.5 MG, UNK
     Route: 042
     Dates: start: 20110913, end: 20111219
  2. DOXORUBICIN [Concomitant]
  3. VINCRISTINE [Concomitant]
  4. DEXAMETHASONE [Concomitant]
     Dosage: 20 MG, UNK
     Dates: start: 20120913
  5. THALIDOMIDE [Concomitant]
  6. LENALIDOMIDE [Concomitant]
     Dosage: 10 MG, UNK
  7. ZOLEDRONIC ACID [Concomitant]

REACTIONS (1)
  - Lymphadenopathy [Recovering/Resolving]
